FAERS Safety Report 20593349 (Version 1)
Quarter: 2022Q1

REPORT INFORMATION
  Report Type: Spontaneous
  Country: US (occurrence: US)
  Receive Date: 20220315
  Receipt Date: 20220315
  Transmission Date: 20220423
  Serious: No
  Sender: FDA-Public Use
  Company Number: US-AUROBINDO-AUR-APL-2021-014211

PATIENT
  Sex: Male

DRUGS (1)
  1. REPAGLINIDE [Suspect]
     Active Substance: REPAGLINIDE
     Indication: Product used for unknown indication
     Dosage: DAILY
     Route: 048

REACTIONS (2)
  - Pruritus [Recovering/Resolving]
  - Product substitution issue [Unknown]
